FAERS Safety Report 20822401 (Version 1)
Quarter: 2022Q2

REPORT INFORMATION
  Report Type: Report from Study
  Country: BR (occurrence: None)
  Receive Date: 20220512
  Receipt Date: 20220512
  Transmission Date: 20220721
  Serious: Yes (Death, Hospitalization, Disabling, Other)
  Sender: FDA-Public Use
  Company Number: 2022A155124

PATIENT
  Age: 81 Year
  Sex: Male

DRUGS (68)
  1. DURVALUMAB [Suspect]
     Active Substance: DURVALUMAB
     Indication: Transitional cell carcinoma
     Route: 042
     Dates: start: 20200319, end: 20200319
  2. DURVALUMAB [Suspect]
     Active Substance: DURVALUMAB
     Indication: Transitional cell carcinoma
     Route: 042
     Dates: start: 20200429, end: 20200429
  3. DURVALUMAB [Suspect]
     Active Substance: DURVALUMAB
     Indication: Transitional cell carcinoma
     Route: 042
     Dates: start: 20200521, end: 20200521
  4. DURVALUMAB [Suspect]
     Active Substance: DURVALUMAB
     Indication: Transitional cell carcinoma
     Route: 042
     Dates: start: 20200618, end: 20200618
  5. DURVALUMAB [Suspect]
     Active Substance: DURVALUMAB
     Indication: Transitional cell carcinoma
     Route: 042
     Dates: start: 20200716, end: 20200716
  6. DURVALUMAB [Suspect]
     Active Substance: DURVALUMAB
     Indication: Transitional cell carcinoma
     Route: 042
     Dates: start: 20200813, end: 20200813
  7. DURVALUMAB [Suspect]
     Active Substance: DURVALUMAB
     Indication: Transitional cell carcinoma
     Route: 042
     Dates: start: 20200910, end: 20200910
  8. DURVALUMAB [Suspect]
     Active Substance: DURVALUMAB
     Indication: Transitional cell carcinoma
     Route: 042
     Dates: start: 20201008, end: 20201008
  9. DURVALUMAB [Suspect]
     Active Substance: DURVALUMAB
     Indication: Transitional cell carcinoma
     Route: 042
     Dates: start: 20201112, end: 20201112
  10. DURVALUMAB [Suspect]
     Active Substance: DURVALUMAB
     Indication: Transitional cell carcinoma
     Route: 042
     Dates: start: 20201218, end: 20201218
  11. DURVALUMAB [Suspect]
     Active Substance: DURVALUMAB
     Indication: Transitional cell carcinoma
     Route: 042
     Dates: start: 20210114, end: 20210114
  12. DURVALUMAB [Suspect]
     Active Substance: DURVALUMAB
     Indication: Transitional cell carcinoma
     Route: 042
     Dates: start: 20210211, end: 20210211
  13. DURVALUMAB [Suspect]
     Active Substance: DURVALUMAB
     Indication: Transitional cell carcinoma
     Route: 042
     Dates: start: 20210311, end: 20210311
  14. DURVALUMAB [Suspect]
     Active Substance: DURVALUMAB
     Indication: Transitional cell carcinoma
     Route: 042
     Dates: start: 20210408, end: 20210408
  15. DURVALUMAB [Suspect]
     Active Substance: DURVALUMAB
     Indication: Transitional cell carcinoma
     Route: 042
     Dates: start: 20210506, end: 20210506
  16. DURVALUMAB [Suspect]
     Active Substance: DURVALUMAB
     Indication: Transitional cell carcinoma
     Route: 042
     Dates: start: 20210607, end: 20210607
  17. DURVALUMAB [Suspect]
     Active Substance: DURVALUMAB
     Indication: Transitional cell carcinoma
     Route: 042
     Dates: start: 20210708, end: 20210708
  18. DURVALUMAB [Suspect]
     Active Substance: DURVALUMAB
     Indication: Transitional cell carcinoma
     Route: 042
     Dates: start: 20210805, end: 20210805
  19. DURVALUMAB [Suspect]
     Active Substance: DURVALUMAB
     Indication: Transitional cell carcinoma
     Route: 042
     Dates: start: 20210902, end: 20210902
  20. DURVALUMAB [Suspect]
     Active Substance: DURVALUMAB
     Indication: Transitional cell carcinoma
     Route: 042
     Dates: start: 20210930, end: 20210930
  21. DURVALUMAB [Suspect]
     Active Substance: DURVALUMAB
     Indication: Transitional cell carcinoma
     Route: 042
     Dates: start: 20211028, end: 20211028
  22. DURVALUMAB [Suspect]
     Active Substance: DURVALUMAB
     Indication: Transitional cell carcinoma
     Route: 042
     Dates: start: 20211209, end: 20211209
  23. DURVALUMAB [Suspect]
     Active Substance: DURVALUMAB
     Indication: Transitional cell carcinoma
     Route: 042
     Dates: start: 20191204, end: 20191204
  24. DURVALUMAB [Suspect]
     Active Substance: DURVALUMAB
     Indication: Transitional cell carcinoma
     Route: 042
     Dates: start: 20200108, end: 20200108
  25. DURVALUMAB [Suspect]
     Active Substance: DURVALUMAB
     Indication: Transitional cell carcinoma
     Route: 042
     Dates: start: 20200130, end: 20200130
  26. DURVALUMAB [Suspect]
     Active Substance: DURVALUMAB
     Indication: Transitional cell carcinoma
     Route: 042
     Dates: start: 20200220, end: 20200220
  27. TREMELIMUMAB [Suspect]
     Active Substance: TREMELIMUMAB
     Indication: Transitional cell carcinoma
     Route: 042
     Dates: start: 20191204, end: 20191204
  28. TREMELIMUMAB [Suspect]
     Active Substance: TREMELIMUMAB
     Indication: Transitional cell carcinoma
     Route: 042
     Dates: start: 20200108, end: 20200108
  29. TREMELIMUMAB [Suspect]
     Active Substance: TREMELIMUMAB
     Indication: Transitional cell carcinoma
     Route: 042
     Dates: start: 20200130, end: 20200130
  30. TREMELIMUMAB [Suspect]
     Active Substance: TREMELIMUMAB
     Indication: Transitional cell carcinoma
     Route: 042
     Dates: start: 20200220, end: 20200220
  31. CISPLATIN [Suspect]
     Active Substance: CISPLATIN
     Indication: Transitional cell carcinoma
     Route: 042
     Dates: start: 20191204, end: 20191204
  32. GEMCITABINE [Suspect]
     Active Substance: GEMCITABINE
     Indication: Transitional cell carcinoma
     Dosage: 1000.0 MG/M2 1000 MG/M2 ON DAYS 1 AND 8 OF EVERY 3 WEEK CYCLE FOR 6 CYCLES
     Route: 042
     Dates: start: 20200206, end: 20200206
  33. GEMCITABINE [Suspect]
     Active Substance: GEMCITABINE
     Indication: Transitional cell carcinoma
     Dosage: 1000.0 MG/M2 1000 MG/M2 ON DAYS 1 AND 8 OF EVERY 3 WEEK CYCLE FOR 6 CYCLES
     Route: 042
     Dates: start: 20200220, end: 20200220
  34. GEMCITABINE [Suspect]
     Active Substance: GEMCITABINE
     Indication: Transitional cell carcinoma
     Dosage: 1000.0 MG/M2 1000 MG/M2 ON DAYS 1 AND 8 OF EVERY 3 WEEK CYCLE FOR 6 CYCLES
     Route: 042
     Dates: start: 20200127, end: 20200127
  35. GEMCITABINE [Suspect]
     Active Substance: GEMCITABINE
     Indication: Transitional cell carcinoma
     Dosage: 1000.0 MG/M2 1000 MG/M2 ON DAYS 1 AND 8 OF EVERY 3 WEEK CYCLE FOR 6 CYCLES
     Route: 042
     Dates: start: 20200319, end: 20200319
  36. GEMCITABINE [Suspect]
     Active Substance: GEMCITABINE
     Indication: Transitional cell carcinoma
     Dosage: 1000.0 MG/M2 1000 MG/M2 ON DAYS 1 AND 8 OF EVERY 3 WEEK CYCLE FOR 6 CYCLES
     Route: 042
     Dates: start: 20200402, end: 20200402
  37. GEMCITABINE [Suspect]
     Active Substance: GEMCITABINE
     Indication: Transitional cell carcinoma
     Dosage: 1000.0 MG/M2 1000 MG/M2 ON DAYS 1 AND 8 OF EVERY 3 WEEK CYCLE FOR 6 CYCLES
     Route: 042
     Dates: start: 20200430, end: 20200430
  38. GEMCITABINE [Suspect]
     Active Substance: GEMCITABINE
     Indication: Transitional cell carcinoma
     Dosage: 1000.0 MG/M2 1000 MG/M2 ON DAYS 1 AND 8 OF EVERY 3 WEEK CYCLE FOR 6 CYCLES
     Route: 042
     Dates: start: 20191204, end: 20191204
  39. GEMCITABINE [Suspect]
     Active Substance: GEMCITABINE
     Indication: Transitional cell carcinoma
     Dosage: 1000.0 MG/M2 1000 MG/M2 ON DAYS 1 AND 8 OF EVERY 3 WEEK CYCLE FOR 6 CYCLES
     Route: 042
     Dates: start: 20191211, end: 20191211
  40. GEMCITABINE [Suspect]
     Active Substance: GEMCITABINE
     Indication: Transitional cell carcinoma
     Dosage: 1000.0 MG/M2 1000 MG/M2 ON DAYS 1 AND 8 OF EVERY 3 WEEK CYCLE FOR 6 CYCLES
     Route: 042
     Dates: start: 20200108, end: 20200108
  41. GEMCITABINE [Suspect]
     Active Substance: GEMCITABINE
     Indication: Transitional cell carcinoma
     Dosage: 1000.0 MG/M2 1000 MG/M2 ON DAYS 1 AND 8 OF EVERY 3 WEEK CYCLE FOR 6 CYCLES
     Route: 042
     Dates: start: 20200115, end: 20200115
  42. GEMCITABINE [Suspect]
     Active Substance: GEMCITABINE
     Indication: Transitional cell carcinoma
     Dosage: 1000.0 MG/M2 1000 MG/M2 ON DAYS 1 AND 8 OF EVERY 3 WEEK CYCLE FOR 6 CYCLES
     Route: 042
     Dates: start: 20200130, end: 20200130
  43. GEMCITABINE [Suspect]
     Active Substance: GEMCITABINE
     Indication: Transitional cell carcinoma
     Dosage: 1000.0 MG/M2 1000 MG/M2 ON DAYS 1 AND 8 OF EVERY 3 WEEK CYCLE FOR 6 CYCLES
     Route: 042
     Dates: start: 20200507, end: 20200507
  44. CARBOPLATIN [Suspect]
     Active Substance: CARBOPLATIN
     Indication: Transitional cell carcinoma
     Dosage: 5.0 AUC
     Route: 042
     Dates: start: 20200108, end: 20200108
  45. CARBOPLATIN [Suspect]
     Active Substance: CARBOPLATIN
     Indication: Transitional cell carcinoma
     Dosage: 5.0 AUC
     Route: 042
     Dates: start: 20200130, end: 20200130
  46. CARBOPLATIN [Suspect]
     Active Substance: CARBOPLATIN
     Indication: Transitional cell carcinoma
     Dosage: 5.0 AUC
     Route: 042
     Dates: start: 20200220, end: 20200220
  47. CARBOPLATIN [Suspect]
     Active Substance: CARBOPLATIN
     Indication: Transitional cell carcinoma
     Dosage: 5.0 AUC
     Route: 042
     Dates: start: 20200319, end: 20200319
  48. CARBOPLATIN [Suspect]
     Active Substance: CARBOPLATIN
     Indication: Transitional cell carcinoma
     Dosage: 6.0 AUC
     Route: 042
     Dates: start: 20200430, end: 20200430
  49. COLCHICINE [Concomitant]
     Active Substance: COLCHICINE
     Indication: Gout
     Route: 048
     Dates: start: 2014, end: 2020
  50. ALLOPURINOL [Concomitant]
     Active Substance: ALLOPURINOL
     Indication: Gout
     Route: 048
     Dates: start: 2014
  51. TRAVATAN [Concomitant]
     Active Substance: TRAVOPROST
     Indication: Glaucoma
     Route: 047
     Dates: start: 201909
  52. AKYNZEO [Concomitant]
     Indication: Nausea
     Route: 048
     Dates: start: 20191204
  53. DEXAMETHASONE [Concomitant]
     Active Substance: DEXAMETHASONE
     Indication: Infusion related reaction
     Route: 042
     Dates: start: 20191204
  54. ONDANSETRON [Concomitant]
     Active Substance: ONDANSETRON
     Indication: Prophylaxis of nausea and vomiting
     Route: 042
     Dates: start: 20191204
  55. DIPYRONE [Concomitant]
     Active Substance: DIPYRONE
     Indication: Headache
     Route: 048
     Dates: start: 20200217
  56. CODEINE [Concomitant]
     Active Substance: CODEINE
     Indication: Headache
     Route: 048
     Dates: start: 20200220
  57. PREDNISONE [Concomitant]
     Active Substance: PREDNISONE
     Indication: Endocrine disorder
     Route: 048
     Dates: start: 20211230
  58. PREDNISONE [Concomitant]
     Active Substance: PREDNISONE
     Indication: Hyponatraemia
     Route: 048
     Dates: start: 20211230
  59. PREDNISONE [Concomitant]
     Active Substance: PREDNISONE
     Indication: Adrenal insufficiency
     Route: 048
     Dates: start: 20211230
  60. PREDNISONE [Concomitant]
     Active Substance: PREDNISONE
     Indication: Proteinuria
     Route: 048
     Dates: start: 20211230
  61. OMEPRAZOLE [Concomitant]
     Active Substance: OMEPRAZOLE
     Indication: Abdominal pain upper
     Route: 048
     Dates: start: 20200327, end: 202006
  62. OMEPRAZOLE [Concomitant]
     Active Substance: OMEPRAZOLE
     Indication: Nausea
     Route: 048
     Dates: start: 20200327, end: 202006
  63. ENALAPRIL [Concomitant]
     Active Substance: ENALAPRIL
     Indication: Hypertension
     Route: 048
     Dates: start: 20201008, end: 2020
  64. IRON POLYMALTOSE [Concomitant]
     Active Substance: IRON POLYMALTOSE
     Indication: Anaemia
     Route: 042
     Dates: start: 20211001
  65. VITAMIN D NOS [Concomitant]
     Active Substance: VITAMIN D NOS
     Indication: Vitamin D
     Route: 048
     Dates: start: 20211005
  66. SULFAMETHOXAZOLE AND TRIMETHOPRIM [Concomitant]
     Active Substance: SULFAMETHOXAZOLE\TRIMETHOPRIM
     Indication: Blood corticotrophin increased
     Route: 048
     Dates: start: 20211230
  67. PANTOPRAZOLE [Concomitant]
     Active Substance: PANTOPRAZOLE
     Indication: Nausea
     Route: 048
     Dates: start: 20220125
  68. DIBASIC SODIUM PHOSPHATE AND MONOBASIC SODIUM PHOSPHATE [Concomitant]
     Indication: Constipation
     Dosage: 133.0ML ONCE/SINGLE ADMINISTRATION
     Route: 054
     Dates: start: 20220408, end: 20220408

REACTIONS (1)
  - Adrenal insufficiency [Fatal]

NARRATIVE: CASE EVENT DATE: 20220408
